FAERS Safety Report 24849050 (Version 1)
Quarter: 2025Q1

REPORT INFORMATION
  Report Type: Spontaneous
  Country: US (occurrence: None)
  Receive Date: 20250115
  Receipt Date: 20250115
  Transmission Date: 20250409
  Serious: Yes (Hospitalization)
  Sender: FDA-CTU
  Company Number: None

PATIENT
  Sex: Female

DRUGS (2)
  1. EVEROLIMUS [Suspect]
     Active Substance: EVEROLIMUS
     Indication: Neuroendocrine tumour
     Dosage: FREQUENCY : DAILY;?
     Route: 048
     Dates: start: 202412
  2. EVEROLIMUS [Suspect]
     Active Substance: EVEROLIMUS
     Indication: Lung carcinoma cell type unspecified stage 0

REACTIONS (2)
  - Pneumonia [None]
  - Epistaxis [None]
